FAERS Safety Report 5963668-4 (Version None)
Quarter: 2008Q4

REPORT INFORMATION
  Report Type: 
  Country: None (occurrence: None)
  Receive Date: 20081124
  Receipt Date: 20081111
  Transmission Date: 20090506
  Serious: Yes (Hospitalization)
  Sender: FDA-Public Use
  Company Number: GB-ELI_LILLY_AND_COMPANY-GB200809001903

PATIENT
  Sex: Male
  Weight: 135 kg

DRUGS (11)
  1. BYETTA [Suspect]
     Indication: DIABETES MELLITUS
     Dosage: 5 UG, UNKNOWN
     Route: 042
     Dates: start: 20080311, end: 20080101
  2. BYETTA [Suspect]
     Dosage: 10 UG, UNKNOWN
     Route: 042
     Dates: start: 20080101, end: 20080101
  3. BYETTA [Suspect]
     Dosage: 5 UG, UNKNOWN
     Route: 042
     Dates: start: 20080101, end: 20080707
  4. BUDESONIDE [Concomitant]
     Dosage: 64 UG/ ACTUATION, AS NEEDED
     Route: 065
  5. FERROUS SULFATE [Concomitant]
     Dosage: 200 MG, 3/D
     Route: 065
  6. FINASTERIDE [Concomitant]
     Dosage: 5 MG, DAILY (1/D)
     Route: 065
  7. FUROSEMIDE [Concomitant]
     Dosage: 20 MG, EACH MORNING
     Route: 065
  8. GLICLAZIDE [Concomitant]
     Dosage: 40 MG, 2/D
     Route: 065
  9. PARACETAMOL [Concomitant]
     Dosage: 500 MG, AS NEEDED
     Route: 065
  10. SENNA [Concomitant]
     Dosage: 7.5 MG, EACH EVENING (1 OR 2 AS NEEDED)
     Route: 065
  11. SIMVASTATIN [Concomitant]
     Dosage: 40 MG, EACH EVENING
     Route: 065

REACTIONS (5)
  - ANEURYSM [None]
  - NAUSEA [None]
  - RENAL FAILURE [None]
  - VOMITING [None]
  - WEIGHT DECREASED [None]
